FAERS Safety Report 15333969 (Version 1)
Quarter: 2018Q3

REPORT INFORMATION
  Report Type: Report from Study
  Country: US (occurrence: US)
  Receive Date: 20180830
  Receipt Date: 20180830
  Transmission Date: 20181010
  Serious: Yes (Other)
  Sender: FDA-Public Use
  Company Number: US-ROCHE-2175075

PATIENT

DRUGS (8)
  1. CISPLATIN. [Suspect]
     Active Substance: CISPLATIN
     Indication: METASTATIC GASTRIC CANCER
  2. TRASTUZUMAB. [Suspect]
     Active Substance: TRASTUZUMAB
     Indication: METASTATIC GASTRIC CANCER
     Dosage: THEREAFTER
     Route: 042
  3. DOCETAXEL. [Suspect]
     Active Substance: DOCETAXEL
     Indication: HER-2 POSITIVE GASTRIC CANCER
     Dosage: DAY 1
     Route: 065
  4. DOCETAXEL. [Suspect]
     Active Substance: DOCETAXEL
     Indication: METASTATIC GASTRIC CANCER
  5. TRASTUZUMAB. [Suspect]
     Active Substance: TRASTUZUMAB
     Indication: HER-2 POSITIVE GASTRIC CANCER
     Dosage: IN CYCLE 1
     Route: 042
  6. CISPLATIN. [Suspect]
     Active Substance: CISPLATIN
     Indication: HER-2 POSITIVE GASTRIC CANCER
     Dosage: DAY 2
     Route: 065
  7. 5?FU [Suspect]
     Active Substance: FLUOROURACIL
     Indication: HER-2 POSITIVE GASTRIC CANCER
     Dosage: DAY 1
     Route: 065
  8. 5?FU [Suspect]
     Active Substance: FLUOROURACIL
     Indication: METASTATIC GASTRIC CANCER
     Dosage: DAYS 1 AND 2, ON A 2?WEEK CYCLE
     Route: 042

REACTIONS (20)
  - Thrombocytopenia [Unknown]
  - Decreased appetite [Unknown]
  - Fatigue [Unknown]
  - Hypophosphataemia [Unknown]
  - Hyponatraemia [Unknown]
  - Hyperbilirubinaemia [Unknown]
  - Syncope [Unknown]
  - Hypokalaemia [Unknown]
  - Hypersensitivity [Unknown]
  - Diarrhoea [Unknown]
  - Hypoalbuminaemia [Unknown]
  - Nausea [Unknown]
  - Embolism [Unknown]
  - Lymphopenia [Unknown]
  - Gastrointestinal haemorrhage [Unknown]
  - Lacrimation increased [Unknown]
  - Hyperglycaemia [Unknown]
  - Dehydration [Unknown]
  - Anaemia [Unknown]
  - Neutropenia [Unknown]
